FAERS Safety Report 7522612-9 (Version None)
Quarter: 2011Q2

REPORT INFORMATION
  Report Type: 
  Country: None (occurrence: None)
  Receive Date: 20110525
  Receipt Date: 20110516
  Transmission Date: 20111010
  Serious: Yes (Life-Threatening, Hospitalization, Other)
  Sender: FDA-Public Use
  Company Number: 2011S1000738

PATIENT
  Age: 50 Year
  Sex: Male

DRUGS (1)
  1. LIVALO [Suspect]
     Indication: BLOOD CHOLESTEROL INCREASED
     Dosage: 2 MG; ; PO
     Route: 048
     Dates: start: 20110429, end: 20110429

REACTIONS (1)
  - MYOCARDIAL INFARCTION [None]
